FAERS Safety Report 21579284 (Version 2)
Quarter: 2023Q1

REPORT INFORMATION
  Report Type: Spontaneous
  Country: US (occurrence: US)
  Receive Date: 20221110
  Receipt Date: 20230317
  Transmission Date: 20230418
  Serious: Yes (Other)
  Sender: FDA-Public Use
  Company Number: US-AMGEN-USASP2022190142

PATIENT
  Age: 65 Year
  Sex: Female
  Weight: 48.073 kg

DRUGS (32)
  1. REPATHA [Suspect]
     Active Substance: EVOLOCUMAB
     Indication: Blood cholesterol increased
     Dosage: 140 MILLIGRAM, Q2WK
     Route: 065
     Dates: start: 20220902
  2. REPATHA [Suspect]
     Active Substance: EVOLOCUMAB
     Indication: Blood cholesterol
  3. PEPCID [Concomitant]
     Active Substance: FAMOTIDINE
     Indication: Product used for unknown indication
     Dosage: 20 MILLIGRAM, BID
     Route: 065
  4. PEPCID [Concomitant]
     Active Substance: FAMOTIDINE
     Route: 058
  5. PEPCID [Concomitant]
     Active Substance: FAMOTIDINE
     Route: 058
  6. PEPCID [Concomitant]
     Active Substance: FAMOTIDINE
     Route: 058
  7. LEVOTHYROXINE [Concomitant]
     Active Substance: LEVOTHYROXINE
     Dosage: 25 MICROGRAM, QD
  8. ACETAMINOPHEN [Concomitant]
     Active Substance: ACETAMINOPHEN
     Indication: Product used for unknown indication
     Route: 058
  9. ACETAMINOPHEN [Concomitant]
     Active Substance: ACETAMINOPHEN
     Route: 058
  10. BRACE [Concomitant]
     Indication: Product used for unknown indication
     Route: 058
  11. BRACE [Concomitant]
     Route: 058
  12. CARDIO [Concomitant]
     Indication: Product used for unknown indication
     Route: 058
  13. CARDIO [Concomitant]
     Route: 058
  14. COMPLEX [Concomitant]
     Indication: Product used for unknown indication
     Route: 058
  15. COMPLEX [Concomitant]
     Route: 058
  16. CONTACT [Concomitant]
     Indication: Product used for unknown indication
     Route: 050
  17. CONTACT [Concomitant]
     Route: 050
  18. CRESTOR [Concomitant]
     Active Substance: ROSUVASTATIN CALCIUM
     Indication: Product used for unknown indication
     Route: 050
  19. CRESTOR [Concomitant]
     Active Substance: ROSUVASTATIN CALCIUM
     Route: 050
  20. DIANE (CYPROTERONE ACETATE\ETHINYL ESTRADIOL) [Concomitant]
     Active Substance: CYPROTERONE ACETATE\ETHINYL ESTRADIOL
     Indication: Product used for unknown indication
     Route: 058
  21. FIBER [Concomitant]
     Indication: Product used for unknown indication
     Route: 058
  22. FIBER [Concomitant]
     Route: 058
  23. HEART [Concomitant]
     Indication: Product used for unknown indication
     Route: 058
  24. HEART [Concomitant]
     Route: 058
  25. LICHEN [Concomitant]
     Indication: Product used for unknown indication
     Route: 058
  26. LICHEN [Concomitant]
     Route: 058
  27. LIPITOR [Concomitant]
     Active Substance: ATORVASTATIN CALCIUM
     Indication: Product used for unknown indication
     Route: 058
  28. LIPITOR [Concomitant]
     Active Substance: ATORVASTATIN CALCIUM
     Route: 058
  29. MELOXICAM [Concomitant]
     Active Substance: MELOXICAM
     Indication: Product used for unknown indication
     Route: 058
  30. MELOXICAM [Concomitant]
     Active Substance: MELOXICAM
     Route: 058
  31. OMEGA [Concomitant]
     Indication: Product used for unknown indication
     Route: 058
  32. OMEGA [Concomitant]
     Route: 058

REACTIONS (11)
  - Meniscus injury [Recovering/Resolving]
  - Tendon pain [Not Recovered/Not Resolved]
  - Bone pain [Unknown]
  - Mucosal pain [Not Recovered/Not Resolved]
  - Alopecia [Not Recovered/Not Resolved]
  - Dry eye [Not Recovered/Not Resolved]
  - Insomnia [Not Recovered/Not Resolved]
  - Migraine with aura [Not Recovered/Not Resolved]
  - Mucosal dryness [Not Recovered/Not Resolved]
  - Pain in extremity [Not Recovered/Not Resolved]
  - Arthralgia [Not Recovered/Not Resolved]

NARRATIVE: CASE EVENT DATE: 20220101
